FAERS Safety Report 23015060 (Version 1)
Quarter: 2023Q4

REPORT INFORMATION
  Report Type: Spontaneous
  Country: ZA (occurrence: ZA)
  Receive Date: 20231002
  Receipt Date: 20231002
  Transmission Date: 20240110
  Serious: Yes (Hospitalization, Other)
  Sender: FDA-Public Use
  Company Number: ZA-BAYER-2023A135572

PATIENT
  Age: 62 Year
  Sex: Female
  Weight: 40.6 kg

DRUGS (1)
  1. GADOBUTROL [Suspect]
     Active Substance: GADOBUTROL
     Indication: Magnetic resonance imaging
     Dosage: UNK, (INJECTION SITE FOREARM)
     Route: 042
     Dates: start: 20230911

REACTIONS (1)
  - Seizure [None]

NARRATIVE: CASE EVENT DATE: 20230911
